FAERS Safety Report 7084582-X (Version None)
Quarter: 2010Q4

REPORT INFORMATION
  Report Type: 
  Country: None (occurrence: None)
  Receive Date: 20101104
  Receipt Date: 20101027
  Transmission Date: 20110411
  Serious: Yes (Death)
  Sender: FDA-Public Use
  Company Number: JP-PFIZER INC-2010136383

PATIENT
  Age: 74 Year
  Sex: Female

DRUGS (4)
  1. SULFASALAZINE [Suspect]
     Indication: ARTHRALGIA
     Dosage: UNK
  2. MIZORIBINE [Suspect]
     Dosage: UNK
  3. PREDNISOLONE [Suspect]
     Dosage: UNK
  4. BUCILLAMINE [Concomitant]
     Indication: ARTHRALGIA
     Dosage: UNK

REACTIONS (1)
  - LEUKAEMIA PLASMACYTIC [None]
